FAERS Safety Report 23392488 (Version 2)
Quarter: 2024Q1

REPORT INFORMATION
  Report Type: Report from Study
  Country: US (occurrence: US)
  Receive Date: 20240111
  Receipt Date: 20240320
  Transmission Date: 20240410
  Serious: Yes (Hospitalization, Other)
  Sender: FDA-Public Use
  Company Number: US-009507513-2306USA013546

PATIENT
  Sex: Male

DRUGS (3)
  1. WELIREG [Suspect]
     Active Substance: BELZUTIFAN
     Dosage: UNK MILLIGRAM
     Route: 048
     Dates: start: 202302, end: 202305
  2. WELIREG [Suspect]
     Active Substance: BELZUTIFAN
     Dosage: 40 MG, FREQ: 3 TIMES A DAY
     Route: 048
     Dates: start: 2023
  3. REGLAN [Suspect]
     Active Substance: METOCLOPRAMIDE HYDROCHLORIDE
     Dosage: UNK
     Dates: start: 202306, end: 202306

REACTIONS (9)
  - Adverse drug reaction [Recovering/Resolving]
  - Gastrointestinal tube insertion [Unknown]
  - Complication associated with device [Unknown]
  - Fall [Unknown]
  - Ligament sprain [Unknown]
  - Device dislocation [Recovered/Resolved]
  - Feeling abnormal [Recovered/Resolved]
  - Inappropriate schedule of product administration [Unknown]
  - Product dose omission issue [Unknown]

NARRATIVE: CASE EVENT DATE: 20230101
